FAERS Safety Report 17699503 (Version 1)
Quarter: 2020Q2

REPORT INFORMATION
  Report Type: Spontaneous
  Country: US (occurrence: US)
  Receive Date: 20200423
  Receipt Date: 20200423
  Transmission Date: 20200714
  Serious: No
  Sender: FDA-Public Use
  Company Number: US-JNJFOC-20200410459

PATIENT
  Sex: Male
  Weight: 63.56 kg

DRUGS (1)
  1. DURAGESIC [Suspect]
     Active Substance: FENTANYL
     Indication: BACK PAIN
     Dosage: THREAPY START DATE IN 1990S
     Route: 062

REACTIONS (6)
  - Application site erythema [Not Recovered/Not Resolved]
  - Application site exfoliation [Not Recovered/Not Resolved]
  - Visual impairment [Not Recovered/Not Resolved]
  - Application site inflammation [Not Recovered/Not Resolved]
  - Product quality issue [Unknown]
  - Dermatitis contact [Not Recovered/Not Resolved]
